FAERS Safety Report 15686346 (Version 2)
Quarter: 2018Q4

REPORT INFORMATION
  Report Type: Spontaneous
  Country: CN (occurrence: CN)
  Receive Date: 20181204
  Receipt Date: 20181214
  Transmission Date: 20190205
  Serious: Yes (Hospitalization)
  Sender: FDA-Public Use
  Company Number: CN-NOVOPROD-635044

PATIENT
  Age: 36 Year
  Sex: Female
  Weight: 74.5 kg

DRUGS (1)
  1. NOVORAPID [Suspect]
     Active Substance: INSULIN ASPART
     Indication: GESTATIONAL DIABETES
     Dosage: 72 U, QD (16U TID AND BASAL RATE WAS 24U)
     Route: 065

REACTIONS (3)
  - Foetal growth restriction [Unknown]
  - Blood glucose increased [Unknown]
  - Exposure during pregnancy [Not Recovered/Not Resolved]
